FAERS Safety Report 7824840-1 (Version None)
Quarter: 2011Q4

REPORT INFORMATION
  Report Type: 
  Country: None (occurrence: None)
  Receive Date: 20111019
  Receipt Date: 20110210
  Transmission Date: 20120403
  Serious: No
  Sender: FDA-Public Use
  Company Number: US-BRISTOL-MYERS SQUIBB COMPANY-15544141

PATIENT
  Age: 55 Year
  Sex: Female

DRUGS (4)
  1. METFORMIN HCL [Concomitant]
  2. DIAZEPAM [Concomitant]
  3. CENTRUM SILVER [Concomitant]
  4. AVALIDE [Suspect]

REACTIONS (3)
  - STRESS [None]
  - BLOOD PRESSURE INADEQUATELY CONTROLLED [None]
  - MIGRAINE [None]
